FAERS Safety Report 9737540 (Version 1)
Quarter: 2013Q4

REPORT INFORMATION
  Report Type: Spontaneous
  Country: US (occurrence: US)
  Receive Date: 20131207
  Receipt Date: 20131207
  Transmission Date: 20140711
  Serious: No
  Sender: FDA-Public Use
  Company Number: US-009507513-1312USA001979

PATIENT
  Sex: 0

DRUGS (1)
  1. AZASITE [Suspect]
     Indication: DRY EYE
     Dosage: 1 UNIT OF USE BOTTLE OF 2.5; 1 DROP IN EACH EYE DAILY ONE MONTH ON AND ONE MONTH OFF
     Route: 047

REACTIONS (5)
  - Inappropriate schedule of drug administration [Unknown]
  - Poor quality drug administered [Unknown]
  - Product packaging quantity issue [Unknown]
  - Off label use [Unknown]
  - No adverse event [Unknown]
